FAERS Safety Report 18612357 (Version 2)
Quarter: 2020Q4

REPORT INFORMATION
  Report Type: Spontaneous
  Country: US (occurrence: US)
  Receive Date: 20201214
  Receipt Date: 20201215
  Transmission Date: 20210114
  Serious: No
  Sender: FDA-Public Use
  Company Number: US-PFIZER INC-2020492230

PATIENT
  Age: 63 Year
  Sex: Female

DRUGS (1)
  1. IBRANCE [Suspect]
     Active Substance: PALBOCICLIB
     Indication: BREAST CANCER
     Dosage: 100 MG, CYCLIC (QD (ONCE A DAY) FOR 21 DAYS THEN 7 DAYS OFF)
     Route: 048
     Dates: start: 20181010

REACTIONS (1)
  - Toothache [Not Recovered/Not Resolved]
